FAERS Safety Report 17429049 (Version 3)
Quarter: 2020Q1

REPORT INFORMATION
  Report Type: Report from Study
  Country: BR (occurrence: BR)
  Receive Date: 20200218
  Receipt Date: 20200324
  Transmission Date: 20200409
  Serious: Yes (Hospitalization)
  Sender: FDA-Public Use
  Company Number: BR-UCBSA-2020005967

PATIENT
  Sex: Female
  Weight: 40 kg

DRUGS (2)
  1. PROBIOTICS NOS [Concomitant]
     Active Substance: PROBIOTICS NOS
     Indication: CROHN^S DISEASE
     Dosage: 10 MILLIGRAM
     Route: 048
  2. CERTOLIZUMAB PEGOL [Suspect]
     Active Substance: CERTOLIZUMAB PEGOL
     Indication: CROHN^S DISEASE
     Dosage: 200 MILLIGRAM, EV 15 DAYS
     Route: 058
     Dates: start: 201907, end: 202001

REACTIONS (2)
  - Inappropriate schedule of product administration [Unknown]
  - Asthenia [Recovering/Resolving]
